FAERS Safety Report 20913717 (Version 3)
Quarter: 2022Q3

REPORT INFORMATION
  Report Type: Other
  Country: GB (occurrence: None)
  Receive Date: 20220604
  Receipt Date: 20220816
  Transmission Date: 20221027
  Serious: Yes (Other)
  Sender: FDA-Public Use
  Company Number: GB-ROCHE-3110302

PATIENT
  Sex: Male

DRUGS (1)
  1. ESBRIET [Suspect]
     Active Substance: PIRFENIDONE
     Indication: Product used for unknown indication
     Dosage: 3 TABLETS 3 TIMES A DAY
     Route: 048
     Dates: start: 20220412

REACTIONS (3)
  - COVID-19 [Unknown]
  - Illness [Unknown]
  - Sunburn [Unknown]
